FAERS Safety Report 7651149-1 (Version None)
Quarter: 2011Q3

REPORT INFORMATION
  Report Type: 
  Country: None (occurrence: None)
  Receive Date: 20110802
  Receipt Date: 20110727
  Transmission Date: 20111222
  Serious: Yes (Other)
  Sender: FDA-Public Use
  Company Number: US-ACTELION-A-US2011-50478

PATIENT

DRUGS (9)
  1. OXYGEN [Concomitant]
  2. HYDROCHLOROTHIAZIDE [Concomitant]
  3. TRACLEER [Suspect]
     Indication: PULMONARY HYPERTENSION
     Dosage: 31.25 MG, BID
     Route: 048
     Dates: start: 20101101
  4. FLOVENT [Concomitant]
  5. CARAFATE [Concomitant]
  6. ALBUTEROL SULFATE AUTOHALER [Concomitant]
  7. ASPIRIN [Concomitant]
  8. PREVACID [Concomitant]
  9. ALDACTONE [Concomitant]

REACTIONS (4)
  - NAUSEA [None]
  - GASTROINTESTINAL HAEMORRHAGE [None]
  - HAEMATEMESIS [None]
  - ABDOMINAL DISCOMFORT [None]
